FAERS Safety Report 15498262 (Version 5)
Quarter: 2020Q4

REPORT INFORMATION
  Report Type: Other
  Country: CA (occurrence: CA)
  Receive Date: 20181015
  Receipt Date: 20201225
  Transmission Date: 20210113
  Serious: Yes (Hospitalization)
  Sender: FDA-Public Use
  Company Number: CA-ROCHE-2197811

PATIENT
  Age: 58 Year
  Sex: Female

DRUGS (12)
  1. ALECENSARO [Suspect]
     Active Substance: ALECTINIB
     Dosage: THERAPY RESTARTED, DOSE AND FREQUENCY UNKNOWN
     Route: 048
     Dates: start: 2018
  2. LEVOTHYROXINE. [Concomitant]
     Active Substance: LEVOTHYROXINE
     Route: 048
  3. DEXAMETHASONE. [Concomitant]
     Active Substance: DEXAMETHASONE
     Dates: start: 20180604, end: 20180817
  4. ZOPICLONE [Concomitant]
     Active Substance: ZOPICLONE
     Route: 048
  5. ALECENSARO [Suspect]
     Active Substance: ALECTINIB
     Route: 048
     Dates: start: 201810
  6. TYLENOL [Concomitant]
     Active Substance: ACETAMINOPHEN
     Indication: HEADACHE
  7. ALECENSARO [Suspect]
     Active Substance: ALECTINIB
     Dosage: DOSE REDUCED
     Route: 048
     Dates: start: 201812
  8. ALECENSARO [Suspect]
     Active Substance: ALECTINIB
     Route: 048
     Dates: start: 201902, end: 2020
  9. NIFEDIPINE. [Concomitant]
     Active Substance: NIFEDIPINE
     Route: 048
  10. PANTOPRAZOLE [Concomitant]
     Active Substance: PANTOPRAZOLE
     Route: 048
  11. ALECENSARO [Suspect]
     Active Substance: ALECTINIB
     Indication: NON-SMALL CELL LUNG CANCER
     Dosage: THERAPY INTERRUPTED FOR 2 WEEKS
     Route: 048
     Dates: start: 20180828, end: 2018
  12. PERINDOPRIL [Concomitant]
     Active Substance: PERINDOPRIL
     Route: 048

REACTIONS (9)
  - Nausea [Recovering/Resolving]
  - Asthenia [Recovering/Resolving]
  - Fatigue [Unknown]
  - Fatigue [Recovering/Resolving]
  - Decreased appetite [Recovering/Resolving]
  - Skin discolouration [Unknown]
  - Asthenia [Unknown]
  - Dehydration [Recovering/Resolving]
  - Radiation injury [Unknown]

NARRATIVE: CASE EVENT DATE: 201809
